FAERS Safety Report 8052285 (Version 20)
Quarter: 2018Q1

REPORT INFORMATION
  Report Type: Report from Study
  Country: CA (occurrence: CA)
  Receive Date: 20110725
  Receipt Date: 20180130
  Transmission Date: 20180509
  Serious: Yes (Hospitalization, Other)
  Sender: FDA-Public Use
  Company Number: PHHY2011CA63609

PATIENT
  Age: 65 Year
  Sex: Male

DRUGS (4)
  1. SANDOSTATIN LAR DEPOT [Suspect]
     Active Substance: OCTREOTIDE ACETATE
     Indication: METASTATIC CARCINOID TUMOUR
     Dosage: 20 MG, QMO (EVERY 4 WEEKS)
     Route: 030
     Dates: start: 20090319
  2. ARTHROTEC [Concomitant]
     Active Substance: DICLOFENAC SODIUM\MISOPROSTOL
     Indication: PRODUCT USED FOR UNKNOWN INDICATION
     Route: 065
  3. COVERSYL//PERINDOPRIL ARGININE [Concomitant]
     Active Substance: PERINDOPRIL ARGININE
     Indication: PRODUCT USED FOR UNKNOWN INDICATION
     Route: 065
  4. CRESTOR [Concomitant]
     Active Substance: ROSUVASTATIN CALCIUM
     Indication: PRODUCT USED FOR UNKNOWN INDICATION
     Route: 065

REACTIONS (23)
  - Blood pressure decreased [Recovered/Resolved]
  - Peripheral swelling [Unknown]
  - Blood potassium increased [Unknown]
  - Blood pressure increased [Recovering/Resolving]
  - Blood pressure systolic increased [Unknown]
  - Bradycardia [Unknown]
  - Heart rate increased [Recovered/Resolved]
  - Ileus paralytic [Unknown]
  - Nasopharyngitis [Unknown]
  - Joint stiffness [Unknown]
  - Respiratory rate decreased [Unknown]
  - Incision site pain [Unknown]
  - Injection site mass [Unknown]
  - Injection site pain [Unknown]
  - Injection site discomfort [Recovering/Resolving]
  - Carcinoid tumour of the small bowel [Unknown]
  - Body temperature decreased [Unknown]
  - Fatigue [Unknown]
  - Asthenia [Unknown]
  - Constipation [Unknown]
  - Injection site haemorrhage [Recovering/Resolving]
  - Pain [Unknown]
  - Arthralgia [Recovered/Resolved]

NARRATIVE: CASE EVENT DATE: 20110712
